FAERS Safety Report 9787694 (Version 3)
Quarter: 2014Q2

REPORT INFORMATION
  Report Type: Spontaneous
  Country: DE (occurrence: None)
  Receive Date: 20131226
  Receipt Date: 20140411
  Transmission Date: 20141212
  Serious: Yes (Life-Threatening, Hospitalization, Other)
  Sender: FDA-Public Use
  Company Number: 1312-1629

PATIENT
  Age: 78 Year
  Sex: Male
  Weight: 71 kg

DRUGS (8)
  1. EYLEA [Suspect]
     Indication: AGE-RELATED MACULAR DEGENERATION
     Route: 031
     Dates: start: 20130326, end: 20130326
  2. BIOFERMIN (LACTOMIN) [Concomitant]
  3. ZYLORIC (ALLOPURINOL) [Concomitant]
  4. EPADEL (EICOSAPENTAENOIC ACID) [Concomitant]
  5. MEVALOTIN (PRAVASTATIN SODIUM) [Concomitant]
  6. BLOPRESS (CANDESARTAN CILEXETIL) [Concomitant]
  7. AZILSARTAN (AZILSARTAN) [Concomitant]
  8. PARIET (RABEPRAZOLE SODIUM) [Concomitant]

REACTIONS (5)
  - Pulmonary embolism [None]
  - Pulmonary artery thrombosis [None]
  - Deep vein thrombosis [None]
  - Hypertension [None]
  - Deep vein thrombosis [None]
